FAERS Safety Report 4408607-2 (Version None)
Quarter: 2004Q3

REPORT INFORMATION
  Report Type: 
  Country: None (occurrence: None)
  Receive Date: 20040723
  Receipt Date: 20040715
  Transmission Date: 20050211
  Serious: Yes (Other)
  Sender: FDA-Public Use
  Company Number: 2004223543DE

PATIENT
  Sex: Female

DRUGS (1)
  1. SYNAREL [Suspect]
     Indication: ENDOMETRIOSIS
     Dosage: UNK, UNK, UNK
     Route: 065
     Dates: start: 20040501

REACTIONS (2)
  - ANTI-THYROID ANTIBODY POSITIVE [None]
  - HYPERTHYROIDISM [None]
